FAERS Safety Report 25492335 (Version 1)
Quarter: 2025Q2

REPORT INFORMATION
  Report Type: Spontaneous
  Country: CA (occurrence: CA)
  Receive Date: 20250630
  Receipt Date: 20250630
  Transmission Date: 20250716
  Serious: Yes (Death, Life-Threatening, Hospitalization, Disabling, Congenital Anomaly, Other)
  Sender: Haleon PLC
  Company Number: CA-HALEON-2249223

PATIENT
  Age: 40 Year
  Sex: Female

DRUGS (275)
  1. DICLOFENAC [Suspect]
     Active Substance: DICLOFENAC
     Indication: Product used for unknown indication
  2. DICLOFENAC SODIUM [Suspect]
     Active Substance: DICLOFENAC SODIUM
     Indication: Product used for unknown indication
  3. TUMS [Suspect]
     Active Substance: CALCIUM CARBONATE
     Indication: Product used for unknown indication
  4. ACETAMINOPHEN [Suspect]
     Active Substance: ACETAMINOPHEN
     Indication: Product used for unknown indication
  5. ACTEMRA [Suspect]
     Active Substance: TOCILIZUMAB
     Indication: Product used for unknown indication
  6. LEFLUNOMIDE [Suspect]
     Active Substance: LEFLUNOMIDE
     Indication: Product used for unknown indication
  7. LEFLUNOMIDE [Suspect]
     Active Substance: LEFLUNOMIDE
  8. ACETAMINOPHEN\CODEINE PHOSPHATE [Suspect]
     Active Substance: ACETAMINOPHEN\CODEINE PHOSPHATE
     Indication: Product used for unknown indication
  9. PREDNISONE [Suspect]
     Active Substance: PREDNISONE
     Indication: Product used for unknown indication
  10. ARAVA [Suspect]
     Active Substance: LEFLUNOMIDE
     Indication: Product used for unknown indication
  11. ATOMOXETINE HYDROCHLORIDE [Suspect]
     Active Substance: ATOMOXETINE HYDROCHLORIDE
     Indication: Product used for unknown indication
  12. ATOMOXETINE HYDROCHLORIDE [Suspect]
     Active Substance: ATOMOXETINE HYDROCHLORIDE
  13. BERINERT [Suspect]
     Active Substance: HUMAN C1-ESTERASE INHIBITOR
     Indication: Product used for unknown indication
  14. BUTRANS [Suspect]
     Active Substance: BUPRENORPHINE
     Indication: Product used for unknown indication
  15. CANDESARTAN [Suspect]
     Active Substance: CANDESARTAN
     Indication: Migraine
  16. CHLORHEXIDINE GLUCONATE [Suspect]
     Active Substance: CHLORHEXIDINE GLUCONATE
     Indication: Product used for unknown indication
  17. CIMZIA [Suspect]
     Active Substance: CERTOLIZUMAB PEGOL
     Indication: Product used for unknown indication
  18. CORTISONE ACETATE [Suspect]
     Active Substance: CORTISONE ACETATE
     Indication: Product used for unknown indication
  19. COSENTYX [Suspect]
     Active Substance: SECUKINUMAB
     Indication: Psoriatic arthropathy
  20. COSENTYX [Suspect]
     Active Substance: SECUKINUMAB
  21. COSENTYX [Suspect]
     Active Substance: SECUKINUMAB
  22. COSENTYX [Suspect]
     Active Substance: SECUKINUMAB
  23. COSENTYX [Suspect]
     Active Substance: SECUKINUMAB
  24. MINERALS\VITAMINS [Suspect]
     Active Substance: MINERALS\VITAMINS
     Indication: Product used for unknown indication
  25. MINERALS\VITAMINS [Suspect]
     Active Substance: MINERALS\VITAMINS
  26. DICLOFENAC POTASSIUM [Suspect]
     Active Substance: DICLOFENAC POTASSIUM
     Indication: Product used for unknown indication
  27. DOMPERIDONE MALEATE [Suspect]
     Active Substance: DOMPERIDONE MALEATE
     Indication: Product used for unknown indication
  28. ERELZI [Suspect]
     Active Substance: ETANERCEPT-SZZS
     Indication: Rheumatoid arthritis
  29. ERELZI [Suspect]
     Active Substance: ETANERCEPT-SZZS
  30. ERELZI [Suspect]
     Active Substance: ETANERCEPT-SZZS
  31. ERELZI [Suspect]
     Active Substance: ETANERCEPT-SZZS
  32. ERELZI [Suspect]
     Active Substance: ETANERCEPT-SZZS
  33. ERELZI [Suspect]
     Active Substance: ETANERCEPT-SZZS
  34. ERELZI [Suspect]
     Active Substance: ETANERCEPT-SZZS
  35. ERGOCALCIFEROL [Suspect]
     Active Substance: ERGOCALCIFEROL
     Indication: Product used for unknown indication
  36. FLUMETHASONE [Suspect]
     Active Substance: FLUMETHASONE
     Indication: Product used for unknown indication
  37. FLUMETHASONE PIVALATE [Suspect]
     Active Substance: FLUMETHASONE PIVALATE
     Indication: Product used for unknown indication
  38. FLUMETHASONE PIVALATE [Suspect]
     Active Substance: FLUMETHASONE PIVALATE
  39. FOLIC ACID [Suspect]
     Active Substance: FOLIC ACID
     Indication: Product used for unknown indication
  40. FOSAMAX [Suspect]
     Active Substance: ALENDRONATE SODIUM
     Indication: Product used for unknown indication
  41. GOLD [Suspect]
     Active Substance: GOLD
     Indication: Product used for unknown indication
  42. HAIR KERATIN AMINO ACIDS GOLD COMPLEX [Suspect]
     Active Substance: HAIR KERATIN AMINO ACIDS GOLD COMPLEX
     Indication: Product used for unknown indication
  43. GOLD SODIUM THIOMALATE [Suspect]
     Active Substance: GOLD SODIUM THIOMALATE
     Indication: Product used for unknown indication
  44. HYDROCORTISONE BUTYRATE [Suspect]
     Active Substance: HYDROCORTISONE BUTYRATE
     Indication: Product used for unknown indication
  45. HYDROCORTISONE PROBUTATE [Suspect]
     Active Substance: HYDROCORTISONE PROBUTATE
     Indication: Product used for unknown indication
  46. HYDROXYCHLOROQUINE [Suspect]
     Active Substance: HYDROXYCHLOROQUINE
     Indication: Product used for unknown indication
  47. HYDROXYCHLOROQUINE SULFATE [Suspect]
     Active Substance: HYDROXYCHLOROQUINE SULFATE
     Indication: Rheumatoid arthritis
  48. HYDROXYCHLOROQUINE SULFATE [Suspect]
     Active Substance: HYDROXYCHLOROQUINE SULFATE
  49. HYDROXYCHLOROQUINE SULFATE [Suspect]
     Active Substance: HYDROXYCHLOROQUINE SULFATE
  50. HYDROXYCHLOROQUINE SULFATE [Suspect]
     Active Substance: HYDROXYCHLOROQUINE SULFATE
  51. HYDROXYCHLOROQUINE SULFATE [Suspect]
     Active Substance: HYDROXYCHLOROQUINE SULFATE
  52. HYDROXYCHLOROQUINE SULFATE [Suspect]
     Active Substance: HYDROXYCHLOROQUINE SULFATE
  53. INFLIXIMAB [Suspect]
     Active Substance: INFLIXIMAB
     Indication: Rheumatoid arthritis
  54. INFLIXIMAB [Suspect]
     Active Substance: INFLIXIMAB
  55. INFLIXIMAB [Suspect]
     Active Substance: INFLIXIMAB
  56. INFLIXIMAB [Suspect]
     Active Substance: INFLIXIMAB
  57. INFLIXIMAB [Suspect]
     Active Substance: INFLIXIMAB
  58. INFLIXIMAB [Suspect]
     Active Substance: INFLIXIMAB
  59. INFLIXIMAB [Suspect]
     Active Substance: INFLIXIMAB
  60. INFLIXIMAB [Suspect]
     Active Substance: INFLIXIMAB
  61. INFLIXIMAB [Suspect]
     Active Substance: INFLIXIMAB
  62. ISOPROPYL ALCOHOL [Suspect]
     Active Substance: ISOPROPYL ALCOHOL
     Indication: Product used for unknown indication
  63. KEVZARA [Suspect]
     Active Substance: SARILUMAB
     Indication: Product used for unknown indication
  64. METHYLPREDNISOLONE ACETATE [Suspect]
     Active Substance: METHYLPREDNISOLONE ACETATE
     Indication: Rheumatoid arthritis
  65. METHYLPREDNISOLONE ACETATE [Suspect]
     Active Substance: METHYLPREDNISOLONE ACETATE
  66. METHYLPREDNISOLONE ACETATE [Suspect]
     Active Substance: METHYLPREDNISOLONE ACETATE
  67. METHYLPREDNISOLONE SODIUM SUCCINATE [Suspect]
     Active Substance: METHYLPREDNISOLONE SODIUM SUCCINATE
     Indication: Product used for unknown indication
  68. METHYLPREDNISOLONE SODIUM SUCCINATE [Suspect]
     Active Substance: METHYLPREDNISOLONE SODIUM SUCCINATE
  69. MINOCYCLINE HYDROCHLORIDE [Suspect]
     Active Substance: MINOCYCLINE HYDROCHLORIDE
     Indication: Product used for unknown indication
  70. MINOCYCLINE HYDROCHLORIDE [Suspect]
     Active Substance: MINOCYCLINE HYDROCHLORIDE
  71. MYRBETRIQ [Suspect]
     Active Substance: MIRABEGRON
     Indication: Rheumatoid arthritis
  72. NAPROXEN [Suspect]
     Active Substance: NAPROXEN
     Indication: Product used for unknown indication
  73. NAPROXEN [Suspect]
     Active Substance: NAPROXEN
  74. NAPROXEN [Suspect]
     Active Substance: NAPROXEN
  75. NAPROXEN [Suspect]
     Active Substance: NAPROXEN
  76. NAPROXEN [Suspect]
     Active Substance: NAPROXEN
  77. NAPROXEN SODIUM [Suspect]
     Active Substance: NAPROXEN SODIUM
     Indication: Product used for unknown indication
  78. OTEZLA [Suspect]
     Active Substance: APREMILAST
     Indication: Product used for unknown indication
  79. ALENDRONATE SODIUM [Suspect]
     Active Substance: ALENDRONATE SODIUM
     Indication: Product used for unknown indication
  80. ALENDRONATE SODIUM [Suspect]
     Active Substance: ALENDRONATE SODIUM
  81. ALENDRONATE SODIUM [Suspect]
     Active Substance: ALENDRONATE SODIUM
  82. ALENDRONATE SODIUM [Suspect]
     Active Substance: ALENDRONATE SODIUM
  83. ALENDRONATE SODIUM [Suspect]
     Active Substance: ALENDRONATE SODIUM
  84. AZATHIOPRINE [Suspect]
     Active Substance: AZATHIOPRINE
     Indication: Product used for unknown indication
  85. AZATHIOPRINE [Suspect]
     Active Substance: AZATHIOPRINE
  86. BOTULINUM TOXIN TYPE A [Suspect]
     Active Substance: BOTULINUM TOXIN TYPE A
     Indication: Product used for unknown indication
  87. CALCIUM ASCORBATE [Suspect]
     Active Substance: CALCIUM ASCORBATE
     Indication: Product used for unknown indication
  88. CALCIUM CITRATE [Suspect]
     Active Substance: CALCIUM CITRATE
     Indication: Product used for unknown indication
  89. CALCIUM GLUBIONATE [Suspect]
     Active Substance: CALCIUM GLUBIONATE
     Indication: Product used for unknown indication
  90. CELECOXIB [Suspect]
     Active Substance: CELECOXIB
     Indication: Product used for unknown indication
  91. CETIRIZINE HYDROCHLORIDE [Suspect]
     Active Substance: CETIRIZINE HYDROCHLORIDE
     Indication: Rheumatoid arthritis
  92. CETIRIZINE HYDROCHLORIDE [Suspect]
     Active Substance: CETIRIZINE HYDROCHLORIDE
     Indication: Product used for unknown indication
  93. CETIRIZINE HYDROCHLORIDE [Suspect]
     Active Substance: CETIRIZINE HYDROCHLORIDE
  94. CETIRIZINE HYDROCHLORIDE [Suspect]
     Active Substance: CETIRIZINE HYDROCHLORIDE
  95. CHLORHEXIDINE GLUCONATE\ISOPROPYL ALCOHOL [Suspect]
     Active Substance: CHLORHEXIDINE GLUCONATE\ISOPROPYL ALCOHOL
     Indication: Product used for unknown indication
  96. ENBREL [Suspect]
     Active Substance: ETANERCEPT
     Indication: Product used for unknown indication
  97. ERENUMAB-AOOE [Suspect]
     Active Substance: ERENUMAB-AOOE
     Indication: Migraine
  98. HYRIMOZ [Suspect]
     Active Substance: ADALIMUMAB-ADAZ
     Indication: Rheumatoid arthritis
  99. HYRIMOZ [Suspect]
     Active Substance: ADALIMUMAB-ADAZ
  100. HYRIMOZ [Suspect]
     Active Substance: ADALIMUMAB-ADAZ
  101. HYRIMOZ [Suspect]
     Active Substance: ADALIMUMAB-ADAZ
  102. HYRIMOZ [Suspect]
     Active Substance: ADALIMUMAB-ADAZ
  103. HYRIMOZ [Suspect]
     Active Substance: ADALIMUMAB-ADAZ
  104. HYRIMOZ [Suspect]
     Active Substance: ADALIMUMAB-ADAZ
  105. HYRIMOZ [Suspect]
     Active Substance: ADALIMUMAB-ADAZ
  106. LAMICTAL [Suspect]
     Active Substance: LAMOTRIGINE
     Indication: Product used for unknown indication
  107. MAGNESIUM CITRATE [Suspect]
     Active Substance: MAGNESIUM CITRATE
     Indication: Product used for unknown indication
  108. MAGNESIUM CITRATE [Suspect]
     Active Substance: MAGNESIUM CITRATE
  109. MAGNESIUM CITRATE [Suspect]
     Active Substance: MAGNESIUM CITRATE
  110. MAGNESIUM CITRATE [Suspect]
     Active Substance: MAGNESIUM CITRATE
  111. MAGNESIUM CITRATE [Suspect]
     Active Substance: MAGNESIUM CITRATE
  112. METFORMIN HYDROCHLORIDE [Suspect]
     Active Substance: METFORMIN HYDROCHLORIDE
     Indication: Product used for unknown indication
  113. METHOTREXATE [Suspect]
     Active Substance: METHOTREXATE
     Indication: Rheumatoid arthritis
  114. METHOTREXATE [Suspect]
     Active Substance: METHOTREXATE
  115. METHOTREXATE [Suspect]
     Active Substance: METHOTREXATE
  116. METHOTREXATE [Suspect]
     Active Substance: METHOTREXATE
  117. METHOTREXATE [Suspect]
     Active Substance: METHOTREXATE
  118. METHOTREXATE [Suspect]
     Active Substance: METHOTREXATE
  119. METHOTREXATE [Suspect]
     Active Substance: METHOTREXATE
  120. METHOTREXATE [Suspect]
     Active Substance: METHOTREXATE
  121. METHOTREXATE [Suspect]
     Active Substance: METHOTREXATE
  122. METHOTREXATE [Suspect]
     Active Substance: METHOTREXATE
  123. MYOCHRYSINE [Suspect]
     Active Substance: GOLD SODIUM THIOMALATE
     Indication: Rheumatoid arthritis
  124. MYOCHRYSINE [Suspect]
     Active Substance: GOLD SODIUM THIOMALATE
  125. MYOCHRYSINE [Suspect]
     Active Substance: GOLD SODIUM THIOMALATE
  126. MYOCHRYSINE [Suspect]
     Active Substance: GOLD SODIUM THIOMALATE
  127. MYOCHRYSINE [Suspect]
     Active Substance: GOLD SODIUM THIOMALATE
  128. MYOCHRYSINE [Suspect]
     Active Substance: GOLD SODIUM THIOMALATE
  129. MYOCHRYSINE [Suspect]
     Active Substance: GOLD SODIUM THIOMALATE
  130. MYOCHRYSINE [Suspect]
     Active Substance: GOLD SODIUM THIOMALATE
  131. MYOCHRYSINE [Suspect]
     Active Substance: GOLD SODIUM THIOMALATE
  132. MYOCHRYSINE [Suspect]
     Active Substance: GOLD SODIUM THIOMALATE
  133. MYOCHRYSINE [Suspect]
     Active Substance: GOLD SODIUM THIOMALATE
  134. MYOCHRYSINE [Suspect]
     Active Substance: GOLD SODIUM THIOMALATE
  135. MYOCHRYSINE [Suspect]
     Active Substance: GOLD SODIUM THIOMALATE
  136. MYOCHRYSINE [Suspect]
     Active Substance: GOLD SODIUM THIOMALATE
  137. MYOCHRYSINE [Suspect]
     Active Substance: GOLD SODIUM THIOMALATE
  138. MYOCHRYSINE [Suspect]
     Active Substance: GOLD SODIUM THIOMALATE
  139. MYOCHRYSINE [Suspect]
     Active Substance: GOLD SODIUM THIOMALATE
  140. MYOCHRYSINE [Suspect]
     Active Substance: GOLD SODIUM THIOMALATE
  141. NUCALA [Suspect]
     Active Substance: MEPOLIZUMAB
     Indication: Product used for unknown indication
  142. NUCALA [Suspect]
     Active Substance: MEPOLIZUMAB
  143. NUCALA [Suspect]
     Active Substance: MEPOLIZUMAB
  144. NUCALA [Suspect]
     Active Substance: MEPOLIZUMAB
  145. NUCALA [Suspect]
     Active Substance: MEPOLIZUMAB
  146. NUCALA [Suspect]
     Active Substance: MEPOLIZUMAB
  147. NUCALA [Suspect]
     Active Substance: MEPOLIZUMAB
  148. NUCALA [Suspect]
     Active Substance: MEPOLIZUMAB
  149. NUCALA [Suspect]
     Active Substance: MEPOLIZUMAB
  150. NUCALA [Suspect]
     Active Substance: MEPOLIZUMAB
  151. NUCALA [Suspect]
     Active Substance: MEPOLIZUMAB
  152. NUCALA [Suspect]
     Active Substance: MEPOLIZUMAB
  153. NUCALA [Suspect]
     Active Substance: MEPOLIZUMAB
  154. NUCALA [Suspect]
     Active Substance: MEPOLIZUMAB
  155. NUCALA [Suspect]
     Active Substance: MEPOLIZUMAB
  156. NUCALA [Suspect]
     Active Substance: MEPOLIZUMAB
  157. NUCALA [Suspect]
     Active Substance: MEPOLIZUMAB
  158. NUCALA [Suspect]
     Active Substance: MEPOLIZUMAB
  159. NUCALA [Suspect]
     Active Substance: MEPOLIZUMAB
  160. NUCALA [Suspect]
     Active Substance: MEPOLIZUMAB
  161. ORENCIA [Suspect]
     Active Substance: ABATACEPT
     Indication: Rheumatoid arthritis
  162. ORENCIA [Suspect]
     Active Substance: ABATACEPT
  163. ORENCIA [Suspect]
     Active Substance: ABATACEPT
  164. ORENCIA [Suspect]
     Active Substance: ABATACEPT
  165. OXYCODONE [Suspect]
     Active Substance: OXYCODONE
     Indication: Product used for unknown indication
  166. OXYCODONE [Suspect]
     Active Substance: OXYCODONE
  167. PREDNISONE [Suspect]
     Active Substance: PREDNISONE
     Indication: Rheumatoid arthritis
  168. PSEUDOEPHEDRINE [Suspect]
     Active Substance: PSEUDOEPHEDRINE
     Indication: Product used for unknown indication
  169. PSEUDOEPHEDRINE HYDROCHLORIDE [Suspect]
     Active Substance: PSEUDOEPHEDRINE HYDROCHLORIDE
     Indication: Rheumatoid arthritis
  170. PSEUDOEPHEDRINE HYDROCHLORIDE [Suspect]
     Active Substance: PSEUDOEPHEDRINE HYDROCHLORIDE
  171. PSEUDOEPHEDRINE HYDROCHLORIDE [Suspect]
     Active Substance: PSEUDOEPHEDRINE HYDROCHLORIDE
  172. PSEUDOEPHEDRINE HYDROCHLORIDE [Suspect]
     Active Substance: PSEUDOEPHEDRINE HYDROCHLORIDE
  173. PSEUDOEPHEDRINE HYDROCHLORIDE [Suspect]
     Active Substance: PSEUDOEPHEDRINE HYDROCHLORIDE
  174. PSEUDOEPHEDRINE HYDROCHLORIDE [Suspect]
     Active Substance: PSEUDOEPHEDRINE HYDROCHLORIDE
  175. PSEUDOEPHEDRINE HYDROCHLORIDE [Suspect]
     Active Substance: PSEUDOEPHEDRINE HYDROCHLORIDE
  176. PSEUDOEPHEDRINE HYDROCHLORIDE [Suspect]
     Active Substance: PSEUDOEPHEDRINE HYDROCHLORIDE
  177. PSEUDOEPHEDRINE HYDROCHLORIDE [Suspect]
     Active Substance: PSEUDOEPHEDRINE HYDROCHLORIDE
  178. PSEUDOEPHEDRINE HYDROCHLORIDE [Suspect]
     Active Substance: PSEUDOEPHEDRINE HYDROCHLORIDE
  179. PHTHALYLSULFATHIAZOLE [Suspect]
     Active Substance: PHTHALYLSULFATHIAZOLE
     Indication: Rheumatoid arthritis
  180. PHTHALYLSULFATHIAZOLE [Suspect]
     Active Substance: PHTHALYLSULFATHIAZOLE
  181. RAMIPRIL [Suspect]
     Active Substance: RAMIPRIL
     Indication: Off label use
  182. RANITIDINE HYDROCHLORIDE [Suspect]
     Active Substance: RANITIDINE HYDROCHLORIDE
     Indication: Product used for unknown indication
  183. RANITIDINE HYDROCHLORIDE [Suspect]
     Active Substance: RANITIDINE HYDROCHLORIDE
  184. RANITIDINE HYDROCHLORIDE [Suspect]
     Active Substance: RANITIDINE HYDROCHLORIDE
  185. RANITIDINE HYDROCHLORIDE [Suspect]
     Active Substance: RANITIDINE HYDROCHLORIDE
  186. RANITIDINE HYDROCHLORIDE [Suspect]
     Active Substance: RANITIDINE HYDROCHLORIDE
  187. RITUXIMAB [Suspect]
     Active Substance: RITUXIMAB
     Indication: Rheumatoid arthritis
  188. RITUXIMAB [Suspect]
     Active Substance: RITUXIMAB
  189. RITUXIMAB [Suspect]
     Active Substance: RITUXIMAB
  190. RITUXIMAB [Suspect]
     Active Substance: RITUXIMAB
  191. RITUXIMAB [Suspect]
     Active Substance: RITUXIMAB
  192. RITUXIMAB [Suspect]
     Active Substance: RITUXIMAB
  193. RITUXIMAB [Suspect]
     Active Substance: RITUXIMAB
  194. RITUXIMAB [Suspect]
     Active Substance: RITUXIMAB
  195. RITUXIMAB [Suspect]
     Active Substance: RITUXIMAB
  196. RITUXIMAB [Suspect]
     Active Substance: RITUXIMAB
  197. RITUXIMAB [Suspect]
     Active Substance: RITUXIMAB
  198. RITUXIMAB [Suspect]
     Active Substance: RITUXIMAB
  199. RITUXIMAB [Suspect]
     Active Substance: RITUXIMAB
  200. RITUXIMAB [Suspect]
     Active Substance: RITUXIMAB
  201. RITUXIMAB [Suspect]
     Active Substance: RITUXIMAB
  202. RITUXIMAB [Suspect]
     Active Substance: RITUXIMAB
  203. RITUXIMAB [Suspect]
     Active Substance: RITUXIMAB
  204. RITUXIMAB [Suspect]
     Active Substance: RITUXIMAB
  205. RITUXIMAB [Suspect]
     Active Substance: RITUXIMAB
  206. RITUXIMAB [Suspect]
     Active Substance: RITUXIMAB
  207. RITUXIMAB [Suspect]
     Active Substance: RITUXIMAB
  208. RITUXIMAB [Suspect]
     Active Substance: RITUXIMAB
  209. RITUXIMAB [Suspect]
     Active Substance: RITUXIMAB
  210. RITUXIMAB [Suspect]
     Active Substance: RITUXIMAB
  211. RITUXIMAB [Suspect]
     Active Substance: RITUXIMAB
  212. RITUXIMAB [Suspect]
     Active Substance: RITUXIMAB
  213. RITUXIMAB [Suspect]
     Active Substance: RITUXIMAB
  214. RITUXIMAB [Suspect]
     Active Substance: RITUXIMAB
  215. RITUXIMAB [Suspect]
     Active Substance: RITUXIMAB
  216. RITUXIMAB [Suspect]
     Active Substance: RITUXIMAB
  217. RITUXIMAB [Suspect]
     Active Substance: RITUXIMAB
  218. RITUXIMAB [Suspect]
     Active Substance: RITUXIMAB
  219. RITUXIMAB [Suspect]
     Active Substance: RITUXIMAB
  220. RITUXIMAB [Suspect]
     Active Substance: RITUXIMAB
  221. REMICADE [Suspect]
     Active Substance: INFLIXIMAB
     Indication: Product used for unknown indication
  222. SULFASALAZINE [Suspect]
     Active Substance: SULFASALAZINE
     Indication: Rheumatoid arthritis
  223. SULFASALAZINE [Suspect]
     Active Substance: SULFASALAZINE
  224. SULFASALAZINE [Suspect]
     Active Substance: SULFASALAZINE
  225. SULFASALAZINE [Suspect]
     Active Substance: SULFASALAZINE
  226. SULFASALAZINE [Suspect]
     Active Substance: SULFASALAZINE
  227. SULFASALAZINE [Suspect]
     Active Substance: SULFASALAZINE
  228. HYDROCORTISONE [Suspect]
     Active Substance: HYDROCORTISONE
     Indication: Product used for unknown indication
  229. LEFLUNOMIDE [Suspect]
     Active Substance: LEFLUNOMIDE
     Indication: Rheumatoid arthritis
  230. LEFLUNOMIDE [Suspect]
     Active Substance: LEFLUNOMIDE
  231. LEFLUNOMIDE [Suspect]
     Active Substance: LEFLUNOMIDE
  232. LEFLUNOMIDE [Suspect]
     Active Substance: LEFLUNOMIDE
  233. LEFLUNOMIDE [Suspect]
     Active Substance: LEFLUNOMIDE
  234. LEFLUNOMIDE [Suspect]
     Active Substance: LEFLUNOMIDE
  235. LEFLUNOMIDE [Suspect]
     Active Substance: LEFLUNOMIDE
  236. SULFAMETHOXAZOLE\TRIMETHOPRIM [Suspect]
     Active Substance: SULFAMETHOXAZOLE\TRIMETHOPRIM
     Indication: Product used for unknown indication
  237. SULFASALAZINE [Suspect]
     Active Substance: SULFASALAZINE
     Indication: Product used for unknown indication
  238. TRIAMCINOLONE ACETONIDE [Suspect]
     Active Substance: TRIAMCINOLONE ACETONIDE
     Indication: Product used for unknown indication
  239. TRIAMCINOLONE ACETONIDE [Suspect]
     Active Substance: TRIAMCINOLONE ACETONIDE
  240. TRIAMCINOLONE ACETONIDE [Suspect]
     Active Substance: TRIAMCINOLONE ACETONIDE
  241. TRIAMCINOLONE ACETONIDE [Suspect]
     Active Substance: TRIAMCINOLONE ACETONIDE
  242. TRIAMCINOLONE ACETONIDE [Suspect]
     Active Substance: TRIAMCINOLONE ACETONIDE
  243. DICLOFENAC POTASSIUM [Suspect]
     Active Substance: DICLOFENAC POTASSIUM
     Indication: Product used for unknown indication
  244. CALCIUM CARBONATE [Suspect]
     Active Substance: CALCIUM CARBONATE
     Indication: Product used for unknown indication
  245. DICLOFENAC SODIUM [Suspect]
     Active Substance: DICLOFENAC SODIUM
     Indication: Product used for unknown indication
  246. TOPIRAMATE [Suspect]
     Active Substance: TOPIRAMATE
     Indication: Product used for unknown indication
  247. TOPIRAMATE [Suspect]
     Active Substance: TOPIRAMATE
  248. SIMPONI [Suspect]
     Active Substance: GOLIMUMAB
     Indication: Rheumatoid arthritis
  249. SIRUKUMAB [Suspect]
     Active Substance: SIRUKUMAB
     Indication: Rheumatoid arthritis
  250. SIRUKUMAB [Suspect]
     Active Substance: SIRUKUMAB
     Indication: Prostatic specific antigen
  251. GOLD SODIUM THIOMALATE [Suspect]
     Active Substance: GOLD SODIUM THIOMALATE
     Indication: Product used for unknown indication
  252. TOFACITINIB [Suspect]
     Active Substance: TOFACITINIB
     Indication: Product used for unknown indication
  253. TRAMADOL HYDROCHLORIDE [Suspect]
     Active Substance: TRAMADOL HYDROCHLORIDE
     Indication: Rheumatoid arthritis
  254. TRAMADOL HYDROCHLORIDE [Suspect]
     Active Substance: TRAMADOL HYDROCHLORIDE
  255. VITAMIN C [Suspect]
     Active Substance: ASCORBIC ACID
     Indication: Product used for unknown indication
  256. XELJANZ [Suspect]
     Active Substance: TOFACITINIB CITRATE
     Indication: Product used for unknown indication
  257. XELJANZ [Suspect]
     Active Substance: TOFACITINIB CITRATE
  258. XELJANZ [Suspect]
     Active Substance: TOFACITINIB CITRATE
  259. XELJANZ [Suspect]
     Active Substance: TOFACITINIB CITRATE
  260. XELJANZ [Suspect]
     Active Substance: TOFACITINIB CITRATE
  261. XELJANZ [Suspect]
     Active Substance: TOFACITINIB CITRATE
  262. XELJANZ [Suspect]
     Active Substance: TOFACITINIB CITRATE
  263. XELJANZ [Suspect]
     Active Substance: TOFACITINIB CITRATE
  264. XELJANZ [Suspect]
     Active Substance: TOFACITINIB CITRATE
  265. XELJANZ [Suspect]
     Active Substance: TOFACITINIB CITRATE
  266. XELJANZ [Suspect]
     Active Substance: TOFACITINIB CITRATE
  267. XELJANZ [Suspect]
     Active Substance: TOFACITINIB CITRATE
  268. XELJANZ [Suspect]
     Active Substance: TOFACITINIB CITRATE
  269. XELJANZ [Suspect]
     Active Substance: TOFACITINIB CITRATE
  270. XELJANZ [Suspect]
     Active Substance: TOFACITINIB CITRATE
  271. XELJANZ [Suspect]
     Active Substance: TOFACITINIB CITRATE
  272. XELJANZ [Suspect]
     Active Substance: TOFACITINIB CITRATE
  273. XELJANZ [Suspect]
     Active Substance: TOFACITINIB CITRATE
  274. XELJANZ [Suspect]
     Active Substance: TOFACITINIB CITRATE
  275. XELJANZ [Suspect]
     Active Substance: TOFACITINIB CITRATE

REACTIONS (10)
  - Breast cancer stage III [Fatal]
  - Abdominal pain [Fatal]
  - Asthenia [Fatal]
  - Blepharospasm [Fatal]
  - Blister [Fatal]
  - Folliculitis [Fatal]
  - Gait inability [Fatal]
  - Headache [Fatal]
  - Hepatic enzyme [Fatal]
  - Product quality issue [Fatal]
